FAERS Safety Report 6151831-1 (Version None)
Quarter: 2009Q2

REPORT INFORMATION
  Report Type: 
  Country: None (occurrence: None)
  Receive Date: 20090410
  Receipt Date: 20090330
  Transmission Date: 20091009
  Serious: Yes (Death, Other)
  Sender: FDA-Public Use
  Company Number: DZ-PFIZER INC-2009191103

PATIENT

DRUGS (6)
  1. PREGABALIN [Suspect]
     Indication: NEURALGIA
     Dosage: 50 MG, 1X/DAY
     Route: 048
     Dates: start: 20090323, end: 20090325
  2. AMARYL [Concomitant]
     Dosage: 6 MG DAILY
     Route: 048
  3. TAREG [Concomitant]
     Dosage: 160 MG DAILY
     Route: 048
  4. APROVEL [Concomitant]
     Dosage: 20 MG DAILY
     Route: 048
  5. DRUG, UNSPECIFIED [Concomitant]
     Route: 048
  6. DRUG, UNSPECIFIED [Concomitant]
     Route: 048

REACTIONS (4)
  - COMA [None]
  - HYPERGLYCAEMIA [None]
  - HYPERTENSION [None]
  - PARAESTHESIA [None]
